FAERS Safety Report 23687782 (Version 9)
Quarter: 2024Q4

REPORT INFORMATION
  Report Type: Spontaneous
  Country: US (occurrence: US)
  Receive Date: 20240329
  Receipt Date: 20241111
  Transmission Date: 20250115
  Serious: Yes (Hospitalization, Disabling, Other)
  Sender: ORGANON
  Company Number: US-ORGANON-O2403USA003069

PATIENT
  Sex: Female
  Weight: 63.447 kg

DRUGS (7)
  1. SINGULAIR [Suspect]
     Active Substance: MONTELUKAST SODIUM
     Indication: Asthma
     Dosage: UNK
     Route: 048
     Dates: start: 2009, end: 2017
  2. SINGULAIR [Suspect]
     Active Substance: MONTELUKAST SODIUM
     Indication: Bronchospasm
  3. SINGULAIR [Suspect]
     Active Substance: MONTELUKAST SODIUM
     Indication: Rhinitis allergic
  4. SINGULAIR [Suspect]
     Active Substance: MONTELUKAST SODIUM
     Indication: Asthma
     Dosage: 4 MILLIGRAM
     Route: 048
  5. ZOLOFT [Concomitant]
     Active Substance: SERTRALINE HYDROCHLORIDE
     Dosage: 1 DOSAGE FORM, QD
     Dates: start: 201905
  6. ZYRTEC [Concomitant]
     Active Substance: CETIRIZINE HYDROCHLORIDE
     Indication: Sinusitis
     Dosage: 1 DOSAGE FORM
  7. XYLOMETAZOLINE HYDROCHLORIDE [Concomitant]
     Active Substance: XYLOMETAZOLINE HYDROCHLORIDE
     Indication: Sinusitis
     Dosage: 1 DOSAGE FORM, QD

REACTIONS (55)
  - Major depression [Unknown]
  - Intentional overdose [Unknown]
  - Neuropsychological symptoms [Not Recovered/Not Resolved]
  - Suicidal ideation [Recovered/Resolved]
  - Suicide attempt [Not Recovered/Not Resolved]
  - Intentional self-injury [Not Recovered/Not Resolved]
  - Depression [Recovering/Resolving]
  - Anxiety [Not Recovered/Not Resolved]
  - Headache [Not Recovered/Not Resolved]
  - Bipolar disorder [Recovering/Resolving]
  - Major depression [Unknown]
  - Apathy [Unknown]
  - Somnolence [Recovering/Resolving]
  - Affective disorder [Unknown]
  - Primary stabbing headache [Recovered/Resolved]
  - Fatigue [Recovered/Resolved]
  - Urticaria [Recovered/Resolved]
  - Lip swelling [Recovering/Resolving]
  - Dry eye [Unknown]
  - Premenstrual dysphoric disorder [Unknown]
  - Rhinitis [Unknown]
  - Upper-airway cough syndrome [Unknown]
  - Cough [Unknown]
  - Wheezing [Unknown]
  - Depressed mood [Unknown]
  - Insomnia [Recovering/Resolving]
  - Emotional poverty [Unknown]
  - Hypoaesthesia [Unknown]
  - Boredom [Unknown]
  - Indifference [Unknown]
  - Depersonalisation/derealisation disorder [Recovering/Resolving]
  - Snoring [Unknown]
  - Asthenia [Unknown]
  - Mental status changes [Unknown]
  - Confusional state [Unknown]
  - Borderline personality disorder [Unknown]
  - Mood altered [Unknown]
  - Panic attack [Unknown]
  - Disturbance in attention [Unknown]
  - Feeling of despair [Unknown]
  - Helplessness [Recovering/Resolving]
  - Obsessive-compulsive symptom [Unknown]
  - Frustration tolerance decreased [Unknown]
  - Anhedonia [Unknown]
  - Decreased appetite [Unknown]
  - Nasopharyngitis [Unknown]
  - Nervousness [Unknown]
  - Overdose [Unknown]
  - Formication [Unknown]
  - Anger [Unknown]
  - Derealisation [Unknown]
  - Dissociative disorder [Unknown]
  - Disturbance in attention [Unknown]
  - Tachyphrenia [Unknown]
  - Restlessness [Unknown]
